FAERS Safety Report 7413200-3 (Version None)
Quarter: 2011Q2

REPORT INFORMATION
  Report Type: 
  Country: None (occurrence: None)
  Receive Date: 20110405
  Receipt Date: 20110217
  Transmission Date: 20111010
  Serious: Yes (Death)
  Sender: FDA-Public Use
  Company Number: 2011P1005275

PATIENT
  Age: 19 Year
  Sex: Female

DRUGS (3)
  1. HALOPERIDOL [Suspect]
     Dosage: PO; PARN
     Route: 051
  2. METAXALONE [Suspect]
     Dosage: PO; PARN
     Route: 051
  3. CITALOPRAM HYDROBROMIDE [Suspect]
     Dosage: PO; PARN
     Route: 051

REACTIONS (1)
  - COMPLETED SUICIDE [None]
